FAERS Safety Report 24315578 (Version 1)
Quarter: 2024Q3

REPORT INFORMATION
  Report Type: Spontaneous
  Country: US (occurrence: US)
  Receive Date: 20240913
  Receipt Date: 20240913
  Transmission Date: 20241017
  Serious: No
  Sender: ASTELLAS
  Company Number: US-ASTELLAS-2024-AER-004008

PATIENT
  Age: 56 Year
  Sex: Female

DRUGS (1)
  1. VEOZAH [Suspect]
     Active Substance: FEZOLINETANT
     Indication: Product used for unknown indication
     Dosage: 45 MG ONCE A DAY
     Route: 065
     Dates: start: 202406, end: 20240825

REACTIONS (4)
  - Nausea [Unknown]
  - Eructation [Unknown]
  - Urinary tract infection [Unknown]
  - Insomnia [Unknown]
